FAERS Safety Report 5932670-0 (Version None)
Quarter: 2008Q4

REPORT INFORMATION
  Report Type: 
  Country: None (occurrence: None)
  Receive Date: 20081009
  Receipt Date: 20080226
  Transmission Date: 20090506
  Serious: Yes (Other)
  Sender: FDA-Public Use
  Company Number: PHEH2007US14880

PATIENT
  Sex: Male

DRUGS (4)
  1. ZOMETA [Suspect]
     Indication: MULTIPLE MYELOMA
     Dosage: 4 MG, EVERY 4 WEEKS, INFUSION
     Route: 042
     Dates: start: 20070201, end: 20070801
  2. RADIATION THERAPY (NO INGRIDIENTS/SUBSTANCES) [Suspect]
     Indication: PLASMACYTOMA
  3. MELPHALAN (MELPHALAN) [Concomitant]
  4. PREDNISONE [Concomitant]

REACTIONS (5)
  - IMPAIRED HEALING [None]
  - OSTEONECROSIS [None]
  - TOOTH ABSCESS [None]
  - TOOTH EXTRACTION [None]
  - TOOTH FRACTURE [None]
